FAERS Safety Report 4712473-5 (Version None)
Quarter: 2005Q3

REPORT INFORMATION
  Report Type: 
  Country: None (occurrence: None)
  Receive Date: 20050711
  Receipt Date: 20050627
  Transmission Date: 20060218
  Serious: Yes (Other)
  Sender: FDA-Public Use
  Company Number: 2005085470

PATIENT
  Age: 75 Year
  Sex: Female
  Weight: 73.4827 kg

DRUGS (7)
  1. CELEBREX [Suspect]
     Indication: ARTHRITIS
     Dosage: 200 MG (200 MG 1 IN 1 D) ORAL
     Route: 048
  2. WARFARIN SODIUM [Suspect]
     Dosage: 4 MG (2  MG 2 IN 1 D) ORAL
     Route: 048
  3. CARDIZEM [Concomitant]
  4. IMDUR [Concomitant]
  5. ATENOLOL [Concomitant]
  6. PREVACID [Concomitant]
  7. FOLIC ACID [Concomitant]

REACTIONS (10)
  - CAROTID ARTERY OCCLUSION [None]
  - DRUG DISPENSING ERROR [None]
  - HEART RATE IRREGULAR [None]
  - INCREASED TENDENCY TO BRUISE [None]
  - INTERNATIONAL NORMALISED RATIO FLUCTUATION [None]
  - INTERNATIONAL NORMALISED RATIO INCREASED [None]
  - LIMB INJURY [None]
  - OEDEMA PERIPHERAL [None]
  - OVERDOSE [None]
  - TRANSIENT ISCHAEMIC ATTACK [None]
